FAERS Safety Report 19498189 (Version 1)
Quarter: 2021Q3

REPORT INFORMATION
  Report Type: Spontaneous
  Country: NL (occurrence: ES)
  Receive Date: 20210706
  Receipt Date: 20210706
  Transmission Date: 20211014
  Serious: Yes (Other)
  Sender: FDA-Public Use
  Company Number: ES-FRESENIUS KABI-FK202106649

PATIENT
  Age: 40 Year
  Sex: Female

DRUGS (2)
  1. BEMIPARIN [Suspect]
     Active Substance: BEMIPARIN
     Indication: THROMBOSIS PROPHYLAXIS
     Dosage: SP HIGH OR LOW RISK?BEMIPARIN (2817A)
     Route: 058
     Dates: start: 20200127, end: 20200202
  2. PARACETAMOL (MANUFACTURER UNKNOWN) [Suspect]
     Active Substance: ACETAMINOPHEN
     Indication: PAIN
     Dosage: 1GR/8H?PARACETAMOL 1.000 MG INJECTABLE INFUSION 100 ML 10 BAGS/BOTTLES
     Route: 042
     Dates: start: 20200122, end: 20200126

REACTIONS (1)
  - Hepatic cytolysis [Recovered/Resolved]

NARRATIVE: CASE EVENT DATE: 20210128
